FAERS Safety Report 8392544-5 (Version None)
Quarter: 2012Q2

REPORT INFORMATION
  Report Type: 
  Country: None (occurrence: None)
  Receive Date: 20120529
  Receipt Date: 20120518
  Transmission Date: 20120825
  Serious: Yes (Hospitalization, Other)
  Sender: FDA-Public Use
  Company Number: HU-ELI_LILLY_AND_COMPANY-HU201203007543

PATIENT
  Age: 44 Year
  Sex: Male

DRUGS (7)
  1. RAMIPRIL [Concomitant]
  2. TRAMADOL HCL [Concomitant]
  3. TENSIOMIN [Concomitant]
  4. VITAMIN B-12 [Concomitant]
     Indication: SUPPLEMENTATION THERAPY
     Dosage: UNK, UNKNOWN
     Route: 065
  5. ALIMTA [Suspect]
     Indication: ADENOCARCINOMA
     Dosage: 1000 MG, UNK
     Route: 042
     Dates: start: 20111222, end: 20120202
  6. AFLAMIN [Concomitant]
  7. FOLIC ACID [Concomitant]
     Indication: SUPPLEMENTATION THERAPY
     Dosage: UNK, UNKNOWN
     Route: 065

REACTIONS (5)
  - PANCYTOPENIA [None]
  - GASTRIC ULCER [None]
  - MUCOSAL INFLAMMATION [None]
  - DIARRHOEA [None]
  - RASH [None]
